FAERS Safety Report 18581553 (Version 1)
Quarter: 2020Q4

REPORT INFORMATION
  Report Type: Spontaneous
  Country: US (occurrence: US)
  Receive Date: 20201204
  Receipt Date: 20201204
  Transmission Date: 20210114
  Serious: Yes (Hospitalization, Other)
  Sender: FDA-Public Use
  Company Number: US-AMAG PHARMACEUTICALS, INC.-AMAG202004090

PATIENT
  Sex: Female

DRUGS (1)
  1. MAKENA [Suspect]
     Active Substance: HYDROXYPROGESTERONE CAPROATE
     Indication: PREMATURE DELIVERY
     Route: 030
     Dates: start: 2018

REACTIONS (17)
  - Mood swings [Recovered/Resolved]
  - Injection site swelling [Recovered/Resolved]
  - Irritability [Recovered/Resolved]
  - Nausea [Recovered/Resolved]
  - Product administered at inappropriate site [Unknown]
  - Breast cancer stage III [Not Recovered/Not Resolved]
  - Dizziness [Recovered/Resolved]
  - Uterine rupture [Recovered/Resolved]
  - Feeling hot [Recovered/Resolved]
  - Depression [Unknown]
  - Headache [Recovered/Resolved]
  - Adverse event [Recovered/Resolved]
  - Malaise [Recovered/Resolved]
  - Fatigue [Recovered/Resolved]
  - Injection site erythema [Recovered/Resolved]
  - Injection site bruising [Recovered/Resolved]
  - Injection site pain [Recovered/Resolved]

NARRATIVE: CASE EVENT DATE: 2018
